FAERS Safety Report 20604497 (Version 2)
Quarter: 2022Q2

REPORT INFORMATION
  Report Type: Spontaneous
  Country: US (occurrence: US)
  Receive Date: 20220316
  Receipt Date: 20220504
  Transmission Date: 20220721
  Serious: Yes (Other)
  Sender: FDA-Public Use
  Company Number: US-Blueprint Medicines Corporation-SP-US-2022-000661

PATIENT
  Age: 84 Year
  Sex: Female

DRUGS (1)
  1. AYVAKIT [Suspect]
     Active Substance: AVAPRITINIB
     Indication: Systemic mastocytosis
     Route: 048
     Dates: start: 20211021

REACTIONS (4)
  - Haemoglobin decreased [Not Recovered/Not Resolved]
  - Drug ineffective [Unknown]
  - Platelet count decreased [Not Recovered/Not Resolved]
  - Red blood cell count decreased [Not Recovered/Not Resolved]

NARRATIVE: CASE EVENT DATE: 20220228
